FAERS Safety Report 24378181 (Version 1)
Quarter: 2024Q3

REPORT INFORMATION
  Report Type: Report from Study
  Country: GB (occurrence: GB)
  Receive Date: 20240930
  Receipt Date: 20240930
  Transmission Date: 20241017
  Serious: Yes (Hospitalization, Other)
  Sender: MYLAN
  Company Number: GB-MYLANLABS-2024M1086694

PATIENT
  Sex: Male

DRUGS (1)
  1. TOBI PODHALER [Suspect]
     Active Substance: TOBRAMYCIN
     Indication: Cystic fibrosis
     Dosage: 4 DOSAGE FORM, BID (INHALE THE CONTENTS OF FOUR CAPSULES TWICE A DAY)
     Route: 055
     Dates: start: 2021

REACTIONS (1)
  - Nephrolithiasis [Unknown]
